FAERS Safety Report 6401226-8 (Version None)
Quarter: 2009Q4

REPORT INFORMATION
  Report Type: 
  Country: None (occurrence: None)
  Receive Date: 20091015
  Receipt Date: 20091005
  Transmission Date: 20100525
  Serious: Yes (Hospitalization)
  Sender: FDA-Public Use
  Company Number: DE-ABBOTT-09P-062-0569567-00

PATIENT
  Sex: Female
  Weight: 48 kg

DRUGS (4)
  1. HUMIRA [Suspect]
     Indication: CROHN'S DISEASE
     Route: 058
     Dates: start: 20090325, end: 20090325
  2. HUMIRA [Suspect]
     Dates: start: 20090408, end: 20090408
  3. AZATHIOPRINE [Concomitant]
     Indication: CROHN'S DISEASE
     Dates: start: 20040814
  4. PENTASA XTEND [Concomitant]
     Indication: CROHN'S DISEASE
     Route: 048
     Dates: start: 20060904

REACTIONS (4)
  - C-REACTIVE PROTEIN INCREASED [None]
  - COUGH [None]
  - CROHN'S DISEASE [None]
  - ERYTHEMA NODOSUM [None]
